FAERS Safety Report 5104677-7 (Version None)
Quarter: 2006Q3

REPORT INFORMATION
  Report Type: 
  Country: None (occurrence: None)
  Receive Date: 20060912
  Receipt Date: 20060912
  Transmission Date: 20061208
  Serious: Yes (Hospitalization)
  Sender: FDA-Public Use
  Company Number: None

PATIENT
  Age: 58 Year
  Sex: Male
  Weight: 53.978 kg

DRUGS (8)
  1. MEGACE [Suspect]
     Indication: WEIGHT DECREASED
     Dosage: 20 ML PO QD
     Route: 048
     Dates: start: 20060809
  2. DECADRON [Concomitant]
  3. KYTRIL [Concomitant]
  4. COMPAZINE [Concomitant]
  5. TAXOL [Concomitant]
  6. ALOXI [Concomitant]
  7. TAGAMET [Concomitant]
  8. CARBOPLATIN [Concomitant]

REACTIONS (4)
  - CONFUSIONAL STATE [None]
  - CONVULSION [None]
  - DISORIENTATION [None]
  - LUNG NEOPLASM MALIGNANT [None]
